FAERS Safety Report 9146120 (Version 4)
Quarter: 2013Q3

REPORT INFORMATION
  Report Type: Report from Study
  Country: AU (occurrence: AU)
  Receive Date: 20130307
  Receipt Date: 20130731
  Transmission Date: 20140515
  Serious: Yes (Other)
  Sender: FDA-Public Use
  Company Number: PHHY2013AU021749

PATIENT
  Age: 38 Year
  Sex: Male
  Weight: 81 kg

DRUGS (5)
  1. CLOZARIL [Suspect]
     Indication: PSYCHOTIC DISORDER
     Dosage: 325 MG,
     Route: 048
     Dates: start: 200910
  2. VITAMIN E [Concomitant]
  3. VITAMIN B12 [Concomitant]
  4. VITAMIIN C [Concomitant]
  5. FISH OIL [Concomitant]
     Dosage: UNK UKN, UNK

REACTIONS (8)
  - Arrhythmia [Not Recovered/Not Resolved]
  - Ventricular extrasystoles [Not Recovered/Not Resolved]
  - Heart rate irregular [Not Recovered/Not Resolved]
  - Palpitations [Unknown]
  - Electrocardiogram QT prolonged [Not Recovered/Not Resolved]
  - Blood creatine phosphokinase increased [Unknown]
  - Gastrointestinal disorder [Recovered/Resolved]
  - Globulins decreased [Unknown]
